FAERS Safety Report 21195260 (Version 1)
Quarter: 2022Q3

REPORT INFORMATION
  Report Type: Report from Study
  Country: US (occurrence: US)
  Receive Date: 20220810
  Receipt Date: 20220810
  Transmission Date: 20221027
  Serious: Yes (Other)
  Sender: FDA-Public Use
  Company Number: US-IPSEN Group, Research and Development-2021-22474

PATIENT
  Age: 12 Year
  Sex: Female
  Weight: 30.25 kg

DRUGS (3)
  1. INCRELEX [Suspect]
     Active Substance: MECASERMIN
     Indication: Short stature
     Dosage: 34 UNITS (112.39 UG/KG)
     Route: 058
     Dates: start: 202101
  2. INCRELEX [Suspect]
     Active Substance: MECASERMIN
     Indication: Cytogenetic abnormality
     Dosage: 40 UNITS (ADVANCE IF PATIENT TOLERATES)
     Route: 058
  3. INCRELEX [Suspect]
     Active Substance: MECASERMIN
     Indication: Off label use

REACTIONS (3)
  - Blood glucose decreased [Recovering/Resolving]
  - Off label use [Unknown]
  - Product dose omission issue [Unknown]

NARRATIVE: CASE EVENT DATE: 20210101
